FAERS Safety Report 10706606 (Version 2)
Quarter: 2015Q1

REPORT INFORMATION
  Report Type: Report from Study
  Country: US (occurrence: US)
  Receive Date: 20150113
  Receipt Date: 20150113
  Transmission Date: 20150721
  Serious: Yes (Other)
  Sender: FDA-Public Use
  Company Number: PHEH2014US023944

PATIENT
  Sex: Female
  Weight: 77.98 kg

DRUGS (1)
  1. GILENYA [Suspect]
     Active Substance: FINGOLIMOD HYDROCHLORIDE
     Indication: MULTIPLE SCLEROSIS
     Dosage: 0.5 MG, QD
     Route: 048
     Dates: start: 20141006

REACTIONS (6)
  - Eye pruritus [Unknown]
  - Pain in extremity [Unknown]
  - Weight increased [Unknown]
  - Peripheral swelling [Unknown]
  - Pruritus generalised [Recovered/Resolved]
  - Thrombosis [Recovered/Resolved]
